FAERS Safety Report 5369487-4 (Version None)
Quarter: 2007Q2

REPORT INFORMATION
  Report Type: 
  Country: None (occurrence: None)
  Receive Date: 20070621
  Receipt Date: 20070606
  Transmission Date: 20071010
  Serious: Yes (Hospitalization, Other)
  Sender: FDA-Public Use
  Company Number: US-CVT-070119

PATIENT
  Age: 79 Year
  Sex: Male

DRUGS (7)
  1. RANEXA [Suspect]
     Indication: ANGINA PECTORIS
     Dosage: 500 MG, QD, ORAL
     Route: 048
     Dates: start: 20061204, end: 20061213
  2. MEVACOR [Suspect]
  3. TOPROL-XL [Concomitant]
  4. NITROGLYCERIN [Concomitant]
  5. PLAVIX [Concomitant]
  6. MULTIVITAMIN [Concomitant]
  7. COENZYME Q10 [Concomitant]

REACTIONS (5)
  - FEELING ABNORMAL [None]
  - HYPOKALAEMIA [None]
  - INSOMNIA [None]
  - RENAL FAILURE ACUTE [None]
  - RHABDOMYOLYSIS [None]
